FAERS Safety Report 5135678-0 (Version None)
Quarter: 2006Q4

REPORT INFORMATION
  Report Type: 
  Country: None (occurrence: None)
  Receive Date: 20061026
  Receipt Date: 20061020
  Transmission Date: 20070319
  Serious: Yes (Other)
  Sender: FDA-Public Use
  Company Number: US-ROCHE-468211

PATIENT
  Age: 50 Year
  Sex: Female

DRUGS (1)
  1. BONIVA [Suspect]
     Indication: DRUG USE FOR UNKNOWN INDICATION
     Dosage: DOSAGE REGIMEN REPORTED AS 'ONE TABLET'.
     Route: 048
     Dates: start: 20060917

REACTIONS (1)
  - ENTEROCOLITIS HAEMORRHAGIC [None]
